FAERS Safety Report 8615389-7 (Version None)
Quarter: 2012Q3

REPORT INFORMATION
  Report Type: 
  Country: None (occurrence: None)
  Receive Date: 20120823
  Receipt Date: 20120816
  Transmission Date: 20120928
  Serious: Yes (Hospitalization, Other)
  Sender: FDA-Public Use
  Company Number: CH-PFIZER INC-2012200359

PATIENT
  Age: 84 Year
  Sex: Female

DRUGS (6)
  1. HALOPERIDOL LACTATE [Suspect]
     Indication: DEMENTIA
     Dosage: 2 MG, 1X/DAY
     Route: 048
     Dates: start: 20120321
  2. HALOPERIDOL LACTATE [Suspect]
     Dosage: 5 MG, 2X/DAY
     Route: 048
     Dates: end: 20120516
  3. CANDESARTAN CILEXETIL [Concomitant]
     Dosage: 8 MG, 1X/DAY
     Route: 048
  4. CALCIMAGON-D3 [Concomitant]
     Dosage: 1 DF, 1X/DAY
     Route: 048
  5. LYRICA [Suspect]
     Indication: EPILEPSY
     Dosage: 150 MG, 2X/DAY
     Route: 048
  6. CARVEDILOL [Concomitant]
     Dosage: 12.5 MG, 1X/DAY
     Route: 048

REACTIONS (11)
  - EPILEPSY [None]
  - EXTRAPYRAMIDAL DISORDER [None]
  - MUSCLE RIGIDITY [None]
  - SALIVARY HYPERSECRETION [None]
  - BLOOD GLUCOSE INCREASED [None]
  - BLOOD CREATINE PHOSPHOKINASE INCREASED [None]
  - BLOOD SODIUM DECREASED [None]
  - ASPARTATE AMINOTRANSFERASE INCREASED [None]
  - ALTERED STATE OF CONSCIOUSNESS [None]
  - CONFUSIONAL STATE [None]
  - GAZE PALSY [None]
